FAERS Safety Report 5523908-2 (Version None)
Quarter: 2007Q4

REPORT INFORMATION
  Report Type: 
  Country: None (occurrence: None)
  Receive Date: 20071121
  Receipt Date: 20071119
  Transmission Date: 20080405
  Serious: Yes (Congenital Anomaly)
  Sender: FDA-Public Use
  Company Number: US-SHR-US-2007-028828

PATIENT
  Sex: Male
  Weight: 2.95 kg

DRUGS (3)
  1. BETASERON [Suspect]
     Dosage: UNK, UNK
     Route: 064
     Dates: end: 20061123
  2. PROCARDIA XL [Concomitant]
     Route: 064
     Dates: start: 20070130
  3. PRENATAL [Concomitant]
     Route: 064

REACTIONS (3)
  - CAESAREAN SECTION [None]
  - DRUG EXPOSURE DURING PREGNANCY [None]
  - SPINA BIFIDA [None]
